FAERS Safety Report 23583059 (Version 1)
Quarter: 2024Q1

REPORT INFORMATION
  Report Type: Spontaneous
  Country: GB (occurrence: GB)
  Receive Date: 20240301
  Receipt Date: 20240301
  Transmission Date: 20240410
  Serious: Yes (Disabling)
  Sender: FDA-Public Use
  Company Number: None

PATIENT
  Age: 82 Year
  Sex: Male
  Weight: 75 kg

DRUGS (13)
  1. FINASTERIDE [Suspect]
     Active Substance: FINASTERIDE
     Indication: Product used for unknown indication
     Dosage: 5 MILLIGRAM, (TABLET)
     Route: 065
     Dates: start: 20230921
  2. GLYCERIN [Concomitant]
     Active Substance: GLYCERIN
     Indication: Product used for unknown indication
     Dosage: 1 DOSAGE FORM, PRN (AS NECESSARY)
     Route: 054
     Dates: start: 20230911
  3. POLYETHYLENE GLYCOL 3350\POTASSIUM CHLORIDE\SODIUM BICARBONATE\SODIUM [Concomitant]
     Active Substance: POLYETHYLENE GLYCOL 3350\POTASSIUM CHLORIDE\SODIUM BICARBONATE\SODIUM CHLORIDE
     Indication: Product used for unknown indication
     Dosage: UNK, (TITRATE TO EFFECT - UPTO 8 SACHETS DAILY IN DIV...)
     Route: 065
     Dates: start: 20230622, end: 20230817
  4. Macrogol compound [Concomitant]
     Indication: Product used for unknown indication
     Dosage: 1 DOSAGE FORM, PRN (TAKE THE CONTENTS OF ONE SACHET)
     Route: 065
     Dates: start: 20221122
  5. NITROFURANTOIN [Concomitant]
     Active Substance: NITROFURANTOIN
     Indication: Product used for unknown indication
     Dosage: 1 DOSAGE FORM, QD (CAPSULE)
     Route: 065
     Dates: start: 20230920
  6. OLANZAPINE [Concomitant]
     Active Substance: OLANZAPINE
     Indication: Product used for unknown indication
     Dosage: 1 DOSAGE FORM, HS (TABLET, AT NIGHT)
     Route: 065
     Dates: start: 20221122
  7. OXYBUTYNIN [Concomitant]
     Active Substance: OXYBUTYNIN\OXYBUTYNIN CHLORIDE
     Indication: Bladder disorder
     Dosage: 1 DOSAGE FORM, HS (TABLET, AT NIGHT)
     Route: 065
     Dates: start: 20221122
  8. ACETAMINOPHEN [Concomitant]
     Active Substance: ACETAMINOPHEN
     Indication: Product used for unknown indication
     Dosage: UNK, (IF WEIGHT GREATER THAN 50KG AND NO RISK FACTORS...)
     Route: 065
     Dates: start: 20230921
  9. LITHIUM [Concomitant]
     Active Substance: LITHIUM
     Indication: Product used for unknown indication
     Dosage: 2 DOSAGE FORM, HS (TABLET, EACH NIGHT (THIS IS A BRAND OF...)
     Route: 065
     Dates: start: 20230526
  10. SENNA [Concomitant]
     Active Substance: SENNA LEAF\SENNOSIDES\SENNOSIDES A AND B
     Indication: Constipation
     Dosage: UNK, HS (TAKE ONE OR TWO TABLETS AT BEDTIME TO HELP RELIEVE CONSTIPATION)
     Route: 065
     Dates: start: 20230814
  11. SERTRALINE [Concomitant]
     Active Substance: SERTRALINE HYDROCHLORIDE
     Indication: Product used for unknown indication
     Dosage: 150 MILLIGRAM, QD (TABLET)
     Route: 065
     Dates: start: 20221122
  12. TAMSULOSIN HYDROCHLORIDE [Concomitant]
     Active Substance: TAMSULOSIN HYDROCHLORIDE
     Indication: Product used for unknown indication
     Dosage: 1 DOSAGE FORM, QD (CAPSULE)
     Route: 065
     Dates: start: 20221122
  13. BENZALKONIUM CHLORIDE\DIMETHICONE\HYDROCORTISONE\NYSTATIN [Concomitant]
     Active Substance: BENZALKONIUM CHLORIDE\DIMETHICONE\HYDROCORTISONE\NYSTATIN
     Indication: Product used for unknown indication
     Dosage: 3 DOSAGE FORM, QD (APPLY)
     Route: 065
     Dates: start: 20230825, end: 20230901

REACTIONS (1)
  - Rash [Recovered/Resolved]

NARRATIVE: CASE EVENT DATE: 20230921
